FAERS Safety Report 7960375-3 (Version None)
Quarter: 2011Q4

REPORT INFORMATION
  Report Type: 
  Country: None (occurrence: None)
  Receive Date: 20111201
  Receipt Date: 20111123
  Transmission Date: 20120403
  Serious: Yes (Hospitalization)
  Sender: FDA-Public Use
  Company Number: 2011MA016813

PATIENT
  Age: 89 Year
  Sex: Female

DRUGS (3)
  1. PRACARDIA XL [Concomitant]
  2. ATENOLOL [Concomitant]
  3. NIFEDIPINE [Suspect]
     Indication: HYPERTENSION
     Dates: start: 20111001, end: 20111001

REACTIONS (4)
  - DIZZINESS [None]
  - PRODUCT SUBSTITUTION ISSUE [None]
  - MALAISE [None]
  - NAUSEA [None]
